FAERS Safety Report 4402045-4 (Version None)
Quarter: 2004Q3

REPORT INFORMATION
  Report Type: 
  Country: None (occurrence: None)
  Receive Date: 20040719
  Receipt Date: 20040719
  Transmission Date: 20050211
  Serious: Yes (Hospitalization)
  Sender: FDA-Public Use
  Company Number: None

PATIENT
  Age: 70 Year
  Sex: Male
  Weight: 72.1219 kg

DRUGS (4)
  1. TAXOTERE [Suspect]
     Indication: NON-SMALL CELL LUNG CANCER
     Dosage: 35MG/M2 DAY 1 +8 INTRAVENOUS
     Route: 042
     Dates: start: 20040610, end: 20040708
  2. CARBOPLATIN [Suspect]
     Indication: NON-SMALL CELL LUNG CANCER
     Dosage: AUC 6 DAY 1 Q 21 INTRAVENOUS
     Route: 042
     Dates: start: 20040610, end: 20040701
  3. . [Concomitant]
  4. . [Concomitant]

REACTIONS (1)
  - PULMONARY EMBOLISM [None]
